FAERS Safety Report 22964336 (Version 4)
Quarter: 2024Q2

REPORT INFORMATION
  Report Type: Spontaneous
  Country: US (occurrence: US)
  Receive Date: 20230921
  Receipt Date: 20240524
  Transmission Date: 20240716
  Serious: Yes (Hospitalization, Other)
  Sender: FDA-Public Use
  Company Number: US-CELLTRION INC.-2022US020196

PATIENT

DRUGS (11)
  1. INFLECTRA [Suspect]
     Active Substance: INFLIXIMAB-DYYB
     Indication: Crohn^s disease
     Dosage: UNKNOWN DOSE; INFUSION EVERY 4-6 WKS
     Dates: start: 202207
  2. INFLECTRA [Suspect]
     Active Substance: INFLIXIMAB-DYYB
     Dosage: UNKNOWN DOSE; INFUSION EVERY 4-6 WKS (STOPPED OCT-NOV 2022)
     Dates: start: 202209
  3. INFLECTRA [Suspect]
     Active Substance: INFLIXIMAB-DYYB
     Dosage: UNKNOWN DOSE; INFUSION:UNKNOWN
     Dates: start: 202210
  4. INFLECTRA [Suspect]
     Active Substance: INFLIXIMAB-DYYB
     Dosage: UNKNOWN DOSE; INFUSION:UNKNOWN
     Dates: start: 202211, end: 202211
  5. FOLIC ACID [Concomitant]
     Active Substance: FOLIC ACID
     Indication: Crohn^s disease
     Dosage: 1 MG
     Dates: start: 201905
  6. VITAMINS NOS [Concomitant]
     Active Substance: VITAMINS
     Dosage: ONE A DAY WOMEN^S 50+
  7. VITAMIN D NOS [Concomitant]
     Active Substance: CHOLECALCIFEROL\ERGOCALCIFEROL
     Indication: Crohn^s disease
     Dosage: 2000 MILLIGRAM A DAY
     Dates: start: 201905
  8. CALCIUM WITH VITAMIN D [CALCIUM CARBONATE;COLECALCIFEROL] [Concomitant]
     Indication: Crohn^s disease
     Dosage: 1 TABLET
     Dates: start: 201905
  9. SERTRALINE HYDROCHLORIDE [Concomitant]
     Active Substance: SERTRALINE HYDROCHLORIDE
     Indication: Affective disorder
     Dosage: 60 MG
     Dates: start: 201905
  10. FAMOTIDINE [Concomitant]
     Active Substance: FAMOTIDINE
     Indication: Gastrooesophageal reflux disease
     Dosage: 40 MG DAILY
     Dates: start: 201905
  11. FLORASTOR [SACCHAROMYCES BOULARDII] [Concomitant]
     Indication: Crohn^s disease
     Dosage: UNK
     Dates: start: 201905

REACTIONS (11)
  - Crohn^s disease [Recovered/Resolved]
  - Appendicectomy [Recovered/Resolved]
  - Post procedural fistula [Unknown]
  - Postoperative wound infection [Recovered/Resolved]
  - Infection [Not Recovered/Not Resolved]
  - Abscess [Not Recovered/Not Resolved]
  - Abdominal pain upper [Recovered/Resolved]
  - Diarrhoea [Recovered/Resolved]
  - Illness [Recovered/Resolved]
  - Impaired healing [Unknown]
  - Intentional product use issue [Unknown]

NARRATIVE: CASE EVENT DATE: 20220101
